FAERS Safety Report 9415095 (Version 2)
Quarter: 2013Q3

REPORT INFORMATION
  Report Type: Spontaneous
  Country: CA (occurrence: CA)
  Receive Date: 20130723
  Receipt Date: 20130916
  Transmission Date: 20140515
  Serious: Yes (Other)
  Sender: FDA-Public Use
  Company Number: CA-JNJFOC-20130708310

PATIENT
  Age: 3 Week
  Sex: 0

DRUGS (11)
  1. DARUNAVIR [Suspect]
     Indication: HIV INFECTION
     Dosage: MOTHER^S DOSING
     Route: 064
  2. ETRAVIRINE [Suspect]
     Indication: HIV INFECTION
     Dosage: MOTHER^S DOSING
     Route: 064
  3. TENOFOVIR [Suspect]
     Indication: HIV INFECTION
     Dosage: MOTHER^S DOSING
     Route: 064
  4. RITONAVIR [Suspect]
     Indication: HIV INFECTION
     Dosage: MOTHER^S DOSING
     Route: 064
  5. AMLODIPINE [Suspect]
     Indication: HYPERTENSION
     Dosage: MOTHER^S DOSING
     Route: 064
  6. MONOPRIL [Suspect]
     Indication: HYPERTENSION
     Dosage: MOTHER^S DOSING
     Route: 064
  7. CEFOTAXIME [Suspect]
     Indication: BACTERAEMIA
     Dosage: MOTHER^S DOSING
     Route: 064
  8. CEFOTAXIME [Suspect]
     Indication: PNEUMONIA PNEUMOCOCCAL
     Dosage: MOTHER^S DOSING
     Route: 064
  9. AZITHROMYCIN [Suspect]
     Indication: BACTERAEMIA
     Dosage: MOTHER^S DOSING
     Route: 064
  10. AZITHROMYCIN [Suspect]
     Indication: PNEUMONIA PNEUMOCOCCAL
     Dosage: MOTHER^S DOSING
     Route: 064
  11. ABACAVIR W/LAMIVUDINE/ZIDOVUDINE [Suspect]
     Indication: HIV INFECTION
     Dosage: LAMIVUDINE 150 MG; ZIDOVUDINE 300 MG AND ABACAVIR 300 MG/ MOTHER^S DOSE
     Route: 064

REACTIONS (3)
  - Anaemia [Recovered/Resolved]
  - Blood lactic acid increased [Recovered/Resolved]
  - Foetal exposure during pregnancy [Recovered/Resolved]
